FAERS Safety Report 7495675-7 (Version None)
Quarter: 2011Q2

REPORT INFORMATION
  Report Type: 
  Country: None (occurrence: None)
  Receive Date: 20110523
  Receipt Date: 20110518
  Transmission Date: 20111010
  Serious: No
  Sender: FDA-Public Use
  Company Number: US-PFIZER INC-2011098833

PATIENT

DRUGS (2)
  1. ACETAMINOPHEN [Suspect]
     Dosage: UNK
  2. DILANTIN-125 [Suspect]
     Dosage: UNK

REACTIONS (2)
  - DRUG SCREEN POSITIVE [None]
  - FALSE POSITIVE INVESTIGATION RESULT [None]
